FAERS Safety Report 6579105-5 (Version None)
Quarter: 2010Q1

REPORT INFORMATION
  Report Type: 
  Country: None (occurrence: None)
  Receive Date: 20100212
  Receipt Date: 20100128
  Transmission Date: 20100710
  Serious: Yes (Hospitalization)
  Sender: FDA-Public Use
  Company Number: ES-MYLANLABS-2010S1001423

PATIENT
  Age: 53 Year
  Sex: Female

DRUGS (3)
  1. TAMOXIFENO FUNK 10 MG COMPRIMIDOS , 30 COMPRIMIDOS [Suspect]
     Indication: PERITONEAL FIBROSIS
     Route: 048
     Dates: start: 20040301, end: 20090901
  2. PROGRAF [Interacting]
     Indication: RENAL TRANSPLANT
     Route: 048
     Dates: start: 20090727, end: 20090805
  3. ADVAGRAF [Concomitant]

REACTIONS (2)
  - DRUG INTERACTION [None]
  - HYPERCALCAEMIA [None]
